FAERS Safety Report 8024269-X (Version None)
Quarter: 2012Q1

REPORT INFORMATION
  Report Type: 
  Country: None (occurrence: None)
  Receive Date: 20120105
  Receipt Date: 20111230
  Transmission Date: 20120608
  Serious: Yes (Hospitalization)
  Sender: FDA-Public Use
  Company Number: FR-SANOFI-AVENTIS-2011SA085636

PATIENT
  Age: 80 Year
  Sex: Male

DRUGS (8)
  1. LASIX [Suspect]
     Dates: end: 20111001
  2. DIAMICRON [Concomitant]
     Indication: TYPE 2 DIABETES MELLITUS
  3. TAMSULOSIN HCL [Concomitant]
  4. CORDARONE [Suspect]
     Indication: ATRIAL FIBRILLATION
     Route: 048
  5. CANDESARTAN CILEXETIL [Suspect]
     Dates: end: 20111001
  6. METFORMIN HCL [Concomitant]
     Indication: TYPE 2 DIABETES MELLITUS
  7. ALL OTHER THERAPEUTIC PRODUCTS [Concomitant]
     Indication: RHEUMATOID ARTHRITIS
  8. VIT K ANTAGONISTS [Concomitant]
     Indication: ATRIAL FIBRILLATION

REACTIONS (2)
  - RENAL FAILURE [None]
  - HYPOTHYROIDISM [None]
